FAERS Safety Report 7399317-0 (Version None)
Quarter: 2011Q1

REPORT INFORMATION
  Report Type: 
  Country: None (occurrence: None)
  Receive Date: 20110328
  Receipt Date: 20110318
  Transmission Date: 20110831
  Serious: Yes (Other)
  Sender: FDA-Public Use
  Company Number: 021931

PATIENT
  Age: 26 Year
  Sex: Female

DRUGS (3)
  1. LACOSAMIDE [Suspect]
     Indication: EPILEPSY
     Dosage: TITRATING DOSE UP TO 200, 300, 350 MG
  2. LEVETIRACETAM [Suspect]
     Indication: EPILEPSY
     Dosage: 2500 MG
  3. LEVETIRACETAM [Suspect]
     Indication: CONVULSION
     Dosage: 2500 MG

REACTIONS (5)
  - DRUG INTERACTION [None]
  - DIPLOPIA [None]
  - ATAXIA [None]
  - CONVULSION [None]
  - NEUROTOXICITY [None]
